FAERS Safety Report 13478762 (Version 9)
Quarter: 2018Q3

REPORT INFORMATION
  Report Type: Report from Study
  Country: US (occurrence: US)
  Receive Date: 20170425
  Receipt Date: 20180823
  Transmission Date: 20181010
  Serious: Yes (Life-Threatening, Hospitalization)
  Sender: FDA-Public Use
  Company Number: US-PFIZER INC-2017169245

PATIENT
  Age: 15 Year
  Sex: Female
  Weight: 93.42 kg

DRUGS (2)
  1. ZOLOFT [Suspect]
     Active Substance: SERTRALINE HYDROCHLORIDE
     Indication: MAJOR DEPRESSION
     Dosage: 25 MG, 1X/DAY
     Route: 048
     Dates: start: 20160205, end: 201701
  2. ASPIRIN. [Suspect]
     Active Substance: ASPIRIN
     Indication: ABDOMINAL PAIN
     Dosage: UNK
     Route: 048
     Dates: start: 201702, end: 201702

REACTIONS (3)
  - Intentional self-injury [Recovered/Resolved]
  - Suicidal behaviour [Recovered/Resolved]
  - Abdominal pain [Unknown]

NARRATIVE: CASE EVENT DATE: 201701
